FAERS Safety Report 9032336 (Version 1)
Quarter: 2013Q1

REPORT INFORMATION
  Report Type: Spontaneous
  Country: US (occurrence: US)
  Receive Date: 20130122
  Receipt Date: 20130122
  Transmission Date: 20140127
  Serious: No
  Sender: FDA-Public Use
  Company Number: US-PFIZER INC-2013024444

PATIENT
  Age: 63 Year
  Sex: Female
  Weight: 74.83 kg

DRUGS (11)
  1. EFFEXOR XR [Suspect]
     Indication: DEPRESSION
     Dosage: 150 MG, DAILY
     Dates: end: 201301
  2. QUINIDINE [Concomitant]
     Dosage: 5 MG, DAILY
  3. PREDNISOLONE [Concomitant]
     Dosage: 5 MG, DAILY
  4. CLONIDINE [Concomitant]
     Dosage: 8.1 MG, 2X/DAY
  5. VERAPAMIL [Concomitant]
     Dosage: 180 MG, 2X/DAY
  6. FOLIC ACID [Concomitant]
     Dosage: 2 MG, DAILY
  7. RANITIDINE [Concomitant]
     Dosage: 150 MG, DAILY
  8. HYDROCHLOROTHIAZIDE [Concomitant]
     Dosage: 12.5 MG, DAILY
  9. KLOR-CON 8 MET [Concomitant]
     Dosage: 8 MG, 2X/DAY
  10. ATENOLOL [Concomitant]
     Dosage: 150 MG, MONTHLY
  11. LORCET [Concomitant]
     Indication: MIGRAINE
     Dosage: 40 MG, DAILY

REACTIONS (9)
  - Withdrawal syndrome [Not Recovered/Not Resolved]
  - Hyperhidrosis [Not Recovered/Not Resolved]
  - Headache [Not Recovered/Not Resolved]
  - Feeling abnormal [Not Recovered/Not Resolved]
  - Irritability [Not Recovered/Not Resolved]
  - Insomnia [Not Recovered/Not Resolved]
  - Dysgeusia [Not Recovered/Not Resolved]
  - Gastric disorder [Not Recovered/Not Resolved]
  - Appetite disorder [Not Recovered/Not Resolved]
